FAERS Safety Report 9222252 (Version 2)
Quarter: 2014Q2

REPORT INFORMATION
  Report Type: Spontaneous
  Country: BD (occurrence: BD)
  Receive Date: 20130410
  Receipt Date: 20140616
  Transmission Date: 20141212
  Serious: Yes (Death)
  Sender: FDA-Public Use
  Company Number: PHHY2013BD034470

PATIENT
  Age: 88 Year
  Sex: Male

DRUGS (2)
  1. EXELON PATCH [Suspect]
     Indication: DEMENTIA
     Dosage: 9.5 MG, DAILY (10 CM)
     Route: 062
     Dates: start: 201106
  2. EXELON PATCH [Suspect]
     Dosage: UNK UKN, (DOSE WAS GRADUALLY DECREASED)
     Route: 062
     Dates: end: 20130121

REACTIONS (1)
  - Death [Fatal]
